FAERS Safety Report 22645385 (Version 1)
Quarter: 2023Q2

REPORT INFORMATION
  Report Type: Spontaneous
  Country: BR (occurrence: BR)
  Receive Date: 20230627
  Receipt Date: 20230627
  Transmission Date: 20230722
  Serious: Yes (Hospitalization, Other)
  Sender: FDA-Public Use
  Company Number: BR-SEATTLE GENETICS-2023SGN06004

PATIENT
  Sex: Male

DRUGS (1)
  1. PADCEV [Suspect]
     Active Substance: ENFORTUMAB VEDOTIN-EJFV
     Indication: Product used for unknown indication
     Dosage: UNK UNK, UNKNOWN FREQ. (DOSE DECREASED WITH SECOND CYCLE)
     Route: 065

REACTIONS (4)
  - Skin lesion [Unknown]
  - Chills [Unknown]
  - Pyrexia [Unknown]
  - Dermatitis bullous [Unknown]
